FAERS Safety Report 23495959 (Version 2)
Quarter: 2024Q1

REPORT INFORMATION
  Report Type: Spontaneous
  Country: IE (occurrence: None)
  Receive Date: 20240207
  Receipt Date: 20240209
  Transmission Date: 20240410
  Serious: Yes (Other)
  Sender: FDA-Public Use
  Company Number: 2024A026227

PATIENT
  Age: 66 Year
  Sex: Male

DRUGS (1)
  1. DAPAGLIFLOZIN [Suspect]
     Active Substance: DAPAGLIFLOZIN
     Dosage: 10.0MG UNKNOWN
     Route: 048

REACTIONS (2)
  - Lip and/or oral cavity cancer [Unknown]
  - Dysphagia [Unknown]
